FAERS Safety Report 25337042 (Version 2)
Quarter: 2025Q2

REPORT INFORMATION
  Report Type: Spontaneous
  Country: IT (occurrence: IT)
  Receive Date: 20250520
  Receipt Date: 20250611
  Transmission Date: 20250717
  Serious: Yes (Other)
  Sender: MYLAN
  Company Number: IT-SANDOZ-SDZ2025IT028408

PATIENT
  Age: 28 Year
  Sex: Male

DRUGS (4)
  1. PAROXETINE [Suspect]
     Active Substance: PAROXETINE
     Indication: Anxiety
  2. PAROXETINE [Suspect]
     Active Substance: PAROXETINE
     Indication: Panic attack
     Route: 065
  3. PAROXETINE [Suspect]
     Active Substance: PAROXETINE
     Route: 065
  4. PAROXETINE [Suspect]
     Active Substance: PAROXETINE

REACTIONS (1)
  - Urticarial vasculitis [Recovered/Resolved]
